FAERS Safety Report 6494141-5 (Version None)
Quarter: 2009Q4

REPORT INFORMATION
  Report Type: 
  Country: None (occurrence: None)
  Receive Date: 20091214
  Receipt Date: 20090109
  Transmission Date: 20100525
  Serious: No
  Sender: FDA-Public Use
  Company Number: US-BRISTOL-MYERS SQUIBB COMPANY-14465538

PATIENT
  Age: 65 Year
  Sex: Male

DRUGS (1)
  1. ABILIFY [Suspect]
     Dosage: STARTED WITH 5MG QD,THEN INCREASED TO 10MG QD,THEN STOPPED + RESTARTED ON 08JAN09 DOSAGE OF 5MG QD.

REACTIONS (1)
  - OEDEMA PERIPHERAL [None]
